FAERS Safety Report 12504186 (Version 1)
Quarter: 2016Q2

REPORT INFORMATION
  Report Type: Spontaneous
  Country: JP (occurrence: JP)
  Receive Date: 20160613
  Receipt Date: 20160613
  Transmission Date: 20160815
  Serious: Yes (Hospitalization, Other)
  Sender: FDA-Public Use
  Company Number: JP-BAYER-2016-110005

PATIENT
  Sex: Male
  Weight: .68 kg

DRUGS (2)
  1. ACETYLSALICYLIC ACID({=100 MG) [Suspect]
     Active Substance: ASPIRIN
     Dosage: INITIATED AT 7 WEEKS OF GESTATION
     Route: 064
  2. HEPARIN CALCIUM [Concomitant]
     Active Substance: HEPARIN CALCIUM
     Dosage: INITIATED AT 7 WEEKS OF GESTATION
     Route: 064

REACTIONS (5)
  - Low birth weight baby [None]
  - Apgar score abnormal [None]
  - Premature baby [None]
  - Foetal growth restriction [None]
  - Foetal exposure timing unspecified [None]
